FAERS Safety Report 8804587 (Version 2)
Quarter: 2012Q4

REPORT INFORMATION
  Report Type: 
  Country: US (occurrence: US)
  Receive Date: 20120924
  Receipt Date: 20121023
  Transmission Date: 20130627
  Serious: No
  Sender: FDA-Public Use
  Company Number: US-ASTRAZENECA-2012SE70496

PATIENT
  Age: 67 Year
  Sex: Female
  Weight: 56.2 kg

DRUGS (4)
  1. ENTOCORT EC [Suspect]
     Indication: COLITIS MICROSCOPIC
     Route: 048
     Dates: start: 2010
  2. ENTOCORT EC [Suspect]
     Indication: COLITIS MICROSCOPIC
     Dosage: GENERIC BUDESONIDE
     Route: 048
  3. CALCIUM 600 + D [Concomitant]
     Dosage: 600-400 mg unit
  4. VITAMIN B 12 [Concomitant]

REACTIONS (14)
  - Vitamin B12 deficiency [Unknown]
  - Constipation [Unknown]
  - Gastroenteritis [Unknown]
  - Hypercholesterolaemia [Unknown]
  - Migraine [Unknown]
  - Nausea [Unknown]
  - Osteoporosis [Unknown]
  - Diarrhoea [Unknown]
  - Off label use [Unknown]
  - Abnormal loss of weight [Unknown]
  - Vomiting [Unknown]
  - Anxiety [Unknown]
  - Depression [Unknown]
  - Intentional drug misuse [Unknown]
